FAERS Safety Report 20001716 (Version 10)
Quarter: 2022Q2

REPORT INFORMATION
  Report Type: Spontaneous
  Country: CA (occurrence: CA)
  Receive Date: 20211027
  Receipt Date: 20220418
  Transmission Date: 20220720
  Serious: Yes (Hospitalization, Other)
  Sender: FDA-Public Use
  Company Number: CA-CELLTRION INC.-2021CA014548

PATIENT

DRUGS (18)
  1. INFLECTRA [Suspect]
     Active Substance: INFLIXIMAB-DYYB
     Indication: Colitis ulcerative
     Dosage: 300 MG Q 0 , 2, 6 WEEK THEN EVERY 8 WEEKSWEEK 0 DOSE IN HOSPITAL
     Route: 042
     Dates: start: 20210904, end: 20220122
  2. INFLECTRA [Suspect]
     Active Substance: INFLIXIMAB-DYYB
     Dosage: 300 MG Q 0 , 2, 6 WEEK THEN EVERY 8 WEEKSWEEK 0 DOSE IN HOSPITAL
     Route: 042
     Dates: start: 20210917
  3. INFLECTRA [Suspect]
     Active Substance: INFLIXIMAB-DYYB
     Dosage: 300 MG Q 0 , 2, 6 WEEK THEN EVERY 8 WEEKSWEEK 0 DOSE IN HOSPITAL
     Route: 042
     Dates: start: 20211015
  4. INFLECTRA [Suspect]
     Active Substance: INFLIXIMAB-DYYB
     Dosage: 300 MG Q 0 , 2, 6 WEEK THEN EVERY 8 WEEKSWEEK 0 DOSE IN HOSPITAL
     Route: 042
     Dates: start: 20211210
  5. INFLECTRA [Suspect]
     Active Substance: INFLIXIMAB-DYYB
     Dosage: 300 MG Q 0 , 2, 6 WEEK THEN EVERY 8 WEEKSWEEK 0 DOSE IN HOSPITAL
     Route: 042
     Dates: start: 20220122
  6. INFLECTRA [Suspect]
     Active Substance: INFLIXIMAB-DYYB
     Dosage: 600 MG EVERY 4 WEEKS
     Route: 042
     Dates: start: 20220218
  7. INFLECTRA [Suspect]
     Active Substance: INFLIXIMAB-DYYB
     Dosage: 600 MG EVERY 4 WEEKS
     Route: 042
     Dates: start: 20220218, end: 20220218
  8. INFLECTRA [Suspect]
     Active Substance: INFLIXIMAB-DYYB
     Dosage: 600 MG, RELOAD WEEK 0, 2 THEN CONTINUE EVERY 4 WEEKS
     Route: 042
     Dates: start: 20220309, end: 20220309
  9. INFLECTRA [Suspect]
     Active Substance: INFLIXIMAB-DYYB
     Dosage: 600 MG, RELOAD WEEK 0, 2 THEN CONTINUE EVERY 4 WEEKS
     Route: 042
     Dates: start: 20220324, end: 20220324
  10. BENADRYL [Concomitant]
     Active Substance: DIPHENHYDRAMINE HYDROCHLORIDE
     Dosage: 50 MG
     Route: 042
  11. CALCIUM [Concomitant]
     Active Substance: CALCIUM
     Dosage: 1 DF, 2X/DAY (1 TAB BID)
     Route: 065
     Dates: start: 20220218
  12. DIPHENHYDRAMINE [Concomitant]
     Active Substance: DIPHENHYDRAMINE
     Indication: Premedication
     Dosage: 50 MG
     Dates: start: 20220324, end: 20220324
  13. HYDROCORTISONE [Concomitant]
     Active Substance: HYDROCORTISONE
     Indication: Premedication
     Dosage: 300 MG
     Route: 042
  14. HYDROCORTISONE [Concomitant]
     Active Substance: HYDROCORTISONE
     Dosage: 100 MG
     Dates: start: 20220324, end: 20220324
  15. IRON [Concomitant]
     Active Substance: IRON
     Dosage: 1 DF, 2X/DAY (1 TAB BID)
     Route: 065
     Dates: start: 20220218
  16. PREDNISONE [Concomitant]
     Active Substance: PREDNISONE
     Dosage: UNK
     Route: 065
  17. TYLENOL [Concomitant]
     Active Substance: ACETAMINOPHEN
     Dosage: 650 MCG
     Route: 048
  18. CHOLECALCIFEROL [Concomitant]
     Active Substance: CHOLECALCIFEROL
     Dosage: 2 DF, DAILY (2 TAB DAILY)
     Dates: start: 20220218

REACTIONS (31)
  - Haematochezia [Unknown]
  - Colitis [Unknown]
  - Diarrhoea [Unknown]
  - Flushing [Recovered/Resolved]
  - Abdominal pain [Recovered/Resolved]
  - Hyperhidrosis [Recovered/Resolved]
  - Chills [Recovered/Resolved]
  - Blood pressure increased [Recovered/Resolved]
  - Blood pressure fluctuation [Recovered/Resolved]
  - Condition aggravated [Recovering/Resolving]
  - Heart rate increased [Unknown]
  - Blood pressure fluctuation [Unknown]
  - Flushing [Recovering/Resolving]
  - Oropharyngeal pain [Recovering/Resolving]
  - Abdominal pain upper [Not Recovered/Not Resolved]
  - Cough [Recovering/Resolving]
  - Pain in extremity [Unknown]
  - Back pain [Not Recovered/Not Resolved]
  - Nervousness [Unknown]
  - Discomfort [Unknown]
  - Epigastric discomfort [Recovered/Resolved]
  - Tremor [Recovered/Resolved]
  - Pallor [Unknown]
  - Hyperhidrosis [Unknown]
  - Chills [Unknown]
  - Malaise [Unknown]
  - Blood pressure increased [Unknown]
  - Off label use [Unknown]
  - Off label use [Unknown]
  - Off label use [Unknown]
  - Intentional product use issue [Unknown]

NARRATIVE: CASE EVENT DATE: 20211015
